FAERS Safety Report 6616987-2 (Version None)
Quarter: 2010Q1

REPORT INFORMATION
  Report Type: 
  Country: None (occurrence: None)
  Receive Date: 20100301
  Receipt Date: 20100211
  Transmission Date: 20100710
  Serious: Yes (Death, Hospitalization)
  Sender: FDA-Public Use
  Company Number: 2008EU002269

PATIENT
  Age: 66 Year
  Sex: Male

DRUGS (3)
  1. TACROLIMUS [Suspect]
     Indication: RENAL TRANSPLANT
     Route: 048
  2. CELLCEPT [Suspect]
     Indication: RENAL TRANSPLANT
     Dosage: /D, ORAL
     Route: 048
     Dates: start: 20080703
  3. CORTICOSTEROIDS [Suspect]
     Indication: RENAL TRANSPLANT
     Dosage: /D, RAL
     Route: 048
     Dates: start: 20080703

REACTIONS (2)
  - ASPERGILLOMA [None]
  - CARDIAC ARREST [None]
